FAERS Safety Report 12760060 (Version 1)
Quarter: 2016Q3

REPORT INFORMATION
  Report Type: Spontaneous
  Country: CA (occurrence: CA)
  Receive Date: 20160919
  Receipt Date: 20160919
  Transmission Date: 20161109
  Serious: Yes (Hospitalization, Other)
  Sender: FDA-Public Use
  Company Number: CA-ELI_LILLY_AND_COMPANY-CA201608007153

PATIENT
  Age: 72 Year
  Sex: Female

DRUGS (6)
  1. APO-FOLIC ACID [Concomitant]
     Active Substance: FOLIC ACID
     Dosage: 400 UG, QD
     Route: 048
     Dates: start: 20160520
  2. CORTICOSTEROID NOS [Concomitant]
     Active Substance: CORTICOSTEROID NOS
     Dosage: 4 MG, BIDX3 DAYS
     Route: 048
     Dates: start: 20160622, end: 20160624
  3. ALIMTA [Suspect]
     Active Substance: PEMETREXED DISODIUM
     Dosage: 805 MG, CYCLICAL
     Route: 042
     Dates: end: 20160614
  4. CARBOPLATIN. [Concomitant]
     Active Substance: CARBOPLATIN
     Indication: NON-SMALL CELL LUNG CANCER
     Dosage: UNK, UNKNOWN
     Route: 065
  5. VITAMIN B12 [Concomitant]
     Active Substance: CYANOCOBALAMIN
     Dosage: 1000 UG, QD
     Route: 058
     Dates: start: 20160520
  6. ALIMTA [Suspect]
     Active Substance: PEMETREXED DISODIUM
     Indication: NON-SMALL CELL LUNG CANCER STAGE IV
     Dosage: 500 MG/M2, CYCLICAL (Q3W)
     Route: 042
     Dates: start: 20160602

REACTIONS (6)
  - Dermatitis [Recovered/Resolved]
  - Off label use [Recovered/Resolved]
  - Urinary tract infection [Unknown]
  - Lupus-like syndrome [Recovered/Resolved]
  - Skin toxicity [Unknown]
  - Rash generalised [Unknown]

NARRATIVE: CASE EVENT DATE: 201606
